FAERS Safety Report 8349411-2 (Version None)
Quarter: 2012Q2

REPORT INFORMATION
  Report Type: 
  Country: None (occurrence: None)
  Receive Date: 20120510
  Receipt Date: 20120507
  Transmission Date: 20120825
  Serious: Yes (Death)
  Sender: FDA-Public Use
  Company Number: EG-SANOFI-AVENTIS-2012SA032437

PATIENT
  Age: 69 Year
  Sex: Male

DRUGS (3)
  1. LANTUS [Suspect]
     Dosage: DOSE:30 UNIT(S)
     Route: 058
     Dates: start: 20110430
  2. LANTUS [Suspect]
     Dosage: DOSE:20 UNIT(S)
     Route: 058
     Dates: start: 20110719
  3. LANTUS [Suspect]
     Dosage: DOSE:6 UNIT(S)
     Route: 058
     Dates: start: 20111220, end: 20120310

REACTIONS (1)
  - DEATH [None]
